FAERS Safety Report 4575292-9 (Version None)
Quarter: 2005Q1

REPORT INFORMATION
  Report Type: 
  Country: None (occurrence: None)
  Receive Date: 20050127
  Receipt Date: 20050127
  Transmission Date: 20050727
  Serious: Yes (Hospitalization)
  Sender: FDA-Public Use
  Company Number: None

PATIENT
  Age: 45 Year
  Sex: Male

DRUGS (3)
  1. MEPERGAN FORTIS [Suspect]
     Indication: PAIN
     Dosage: #1 Q 4 H PRN PAIN
     Dates: start: 20050119, end: 20050124
  2. METHADONE HCL [Concomitant]
  3. FENTANYL [Concomitant]

REACTIONS (6)
  - AGITATION [None]
  - HALLUCINATION [None]
  - LEUKOCYTOSIS [None]
  - MENTAL STATUS CHANGES [None]
  - PYREXIA [None]
  - RESPIRATORY FAILURE [None]
